FAERS Safety Report 22234212 (Version 1)
Quarter: 2023Q2

REPORT INFORMATION
  Report Type: Spontaneous
  Country: US (occurrence: None)
  Receive Date: 20230420
  Receipt Date: 20230420
  Transmission Date: 20230722
  Serious: No
  Sender: FDA-Public Use
  Company Number: US-ROCHE-3169960

PATIENT
  Sex: Male

DRUGS (1)
  1. ESBRIET [Suspect]
     Active Substance: PIRFENIDONE
     Indication: Interstitial lung disease
     Dosage: TAKE 1 CAPSULE 3 TIMES DAILY 1 WEEK, THEN 2 CAPSULES 3 TIMES DAILY 1 WEEK, THEN 3 CAPSULES 3 TIMES D
     Route: 048
     Dates: start: 20220722

REACTIONS (5)
  - Fatigue [Unknown]
  - Hyperchlorhydria [Unknown]
  - Photosensitivity reaction [Unknown]
  - Dyspepsia [Unknown]
  - Decreased appetite [Unknown]
